FAERS Safety Report 14577443 (Version 2)
Quarter: 2018Q1

REPORT INFORMATION
  Report Type: Spontaneous
  Country: GB (occurrence: GB)
  Receive Date: 20180227
  Receipt Date: 20180305
  Transmission Date: 20180509
  Serious: Yes (Other)
  Sender: FDA-Public Use
  Company Number: GB-AMGEN-GBRSP2018024522

PATIENT
  Age: 60 Year
  Sex: Male

DRUGS (1)
  1. ARANESP [Suspect]
     Active Substance: DARBEPOETIN ALFA
     Indication: PRODUCT USED FOR UNKNOWN INDICATION
     Dosage: 60 MUG, Q2WK
     Route: 065

REACTIONS (3)
  - Haemodialysis [Unknown]
  - Feeling abnormal [Unknown]
  - Coma [Not Recovered/Not Resolved]

NARRATIVE: CASE EVENT DATE: 201802
